FAERS Safety Report 9096120 (Version 1)
Quarter: 2013Q1

REPORT INFORMATION
  Report Type: Spontaneous
  Country: US (occurrence: US)
  Receive Date: 20130207
  Receipt Date: 20130207
  Transmission Date: 20140127
  Serious: Yes (Other)
  Sender: FDA-Public Use
  Company Number: US-ROXANE LABORATORIES, INC.-2013-RO-00196RO

PATIENT
  Age: 63 Year
  Sex: Female

DRUGS (6)
  1. PREDNISONE [Suspect]
     Indication: ANTI-NEUTROPHIL CYTOPLASMIC ANTIBODY POSITIVE VASCULITIS
     Dosage: 15 MG
  2. PREDNISONE [Suspect]
     Dosage: 5 MG
  3. DEXAMETHASONE [Suspect]
     Indication: PREMEDICATION
  4. PARACETAMOL [Suspect]
     Indication: PREMEDICATION
  5. RITUXIMAB [Suspect]
     Indication: EPISCLERITIS
     Route: 042
  6. RITUXIMAB [Suspect]
     Indication: ANTI-NEUTROPHIL CYTOPLASMIC ANTIBODY POSITIVE VASCULITIS
     Route: 042

REACTIONS (1)
  - Breast cancer [Unknown]
